FAERS Safety Report 4633205-5 (Version None)
Quarter: 2005Q2

REPORT INFORMATION
  Report Type: 
  Country: None (occurrence: None)
  Receive Date: 20050408
  Receipt Date: 20050328
  Transmission Date: 20051028
  Serious: Yes (Other)
  Sender: FDA-Public Use
  Company Number: 2005001070

PATIENT
  Age: 31 Year
  Sex: Female

DRUGS (3)
  1. DEPO-PROVERA [Suspect]
     Indication: MENSTRUAL DISCOMFORT
     Dosage: SEE IMAGE
     Dates: start: 20010101, end: 20010101
  2. DEPO-PROVERA [Suspect]
     Indication: MENSTRUAL DISCOMFORT
     Dosage: SEE IMAGE
     Dates: start: 20050301, end: 20050301
  3. CLONAZEPAM [Concomitant]

REACTIONS (7)
  - AMENORRHOEA [None]
  - CERVIX DISORDER [None]
  - DYSPAREUNIA [None]
  - OFF LABEL USE [None]
  - PAPILLOMA VIRAL INFECTION [None]
  - UTERINE CANCER [None]
  - VAGINAL HAEMORRHAGE [None]
